FAERS Safety Report 18976425 (Version 1)
Quarter: 2021Q1

REPORT INFORMATION
  Report Type: Spontaneous
  Country: US (occurrence: US)
  Receive Date: 20210306
  Receipt Date: 20210306
  Transmission Date: 20210420
  Serious: No
  Sender: FDA-Public Use
  Company Number: US-SA-2021SA072368

PATIENT
  Age: 25 Year
  Sex: Female

DRUGS (1)
  1. DUPIXENT [Suspect]
     Active Substance: DUPILUMAB
     Indication: DERMATITIS ATOPIC
     Route: 058
     Dates: start: 20180101

REACTIONS (6)
  - Rash erythematous [Unknown]
  - Pruritus [Unknown]
  - Tanning [Unknown]
  - Product use issue [Unknown]
  - Rash macular [Unknown]
  - Scar [Unknown]
